FAERS Safety Report 4634334-2 (Version None)
Quarter: 2005Q2

REPORT INFORMATION
  Report Type: 
  Country: None (occurrence: None)
  Receive Date: 20050413
  Receipt Date: 20050329
  Transmission Date: 20051028
  Serious: Yes (Life-Threatening, Hospitalization)
  Sender: FDA-Public Use
  Company Number: 6013964

PATIENT
  Age: 67 Year
  Sex: Male

DRUGS (6)
  1. EMCONCOR COR 1.25 (BISOPROLOL) [Suspect]
     Dosage: ORAL
     Route: 048
     Dates: start: 20040501
  2. TROMALYT (ACETYLSALICYLIC ACID) [Suspect]
     Dosage: 150 MG (150 MG, 1 IN 1 D)
     Dates: start: 20040501, end: 20040712
  3. PLAVIX [Suspect]
     Dosage: 75 MG (75 MG, 1 IN 1 D)
     Dates: start: 20040626
  4. ATORVASTATIN CALCIUM [Suspect]
     Dosage: 20 MG (20 MG, 1 IN 1 D)
     Dates: start: 20040626
  5. ENALAPRIL MALEATE [Concomitant]
  6. OMNIC (TAMSULOSIN HYDROCHLORIDE) [Concomitant]

REACTIONS (1)
  - GASTROINTESTINAL HAEMORRHAGE [None]
